FAERS Safety Report 4466346-6 (Version None)
Quarter: 2004Q4

REPORT INFORMATION
  Report Type: 
  Country: None (occurrence: None)
  Receive Date: 20041005
  Receipt Date: 20040929
  Transmission Date: 20050328
  Serious: Yes (Hospitalization)
  Sender: FDA-Public Use
  Company Number: FR-GLAXOSMITHKLINE-B0346633A

PATIENT
  Age: 83 Year
  Sex: Female

DRUGS (1)
  1. CLAMOXYL [Suspect]
     Indication: ENDOCARDITIS
     Dosage: 1UNIT SINGLE DOSE
     Route: 042
     Dates: start: 20040723, end: 20040723

REACTIONS (7)
  - ANGIONEUROTIC OEDEMA [None]
  - EYE PRURITUS [None]
  - EYELID OEDEMA [None]
  - FACE OEDEMA [None]
  - LARYNGEAL DISCOMFORT [None]
  - LARYNGEAL PAIN [None]
  - LOCALISED OEDEMA [None]
